FAERS Safety Report 4643015-0 (Version None)
Quarter: 2005Q2

REPORT INFORMATION
  Report Type: 
  Country: None (occurrence: None)
  Receive Date: 20050421
  Receipt Date: 20050408
  Transmission Date: 20051028
  Serious: Yes (Hospitalization)
  Sender: FDA-Public Use
  Company Number: 2005CG00537

PATIENT
  Age: 70 Year
  Sex: Male

DRUGS (4)
  1. MOPRAL [Suspect]
     Indication: GASTROINTESTINAL HAEMORRHAGE
     Dosage: 20 MG QD PO
     Route: 048
     Dates: start: 20041001, end: 20041201
  2. MOPRAL [Suspect]
     Indication: GASTROINTESTINAL HAEMORRHAGE
     Dosage: 20 MG BID PO
     Route: 048
     Dates: start: 20041201
  3. AMOXICILLIN [Concomitant]
  4. ZECLAR [Concomitant]

REACTIONS (3)
  - DRUG INEFFECTIVE [None]
  - GASTROINTESTINAL HAEMORRHAGE [None]
  - HELICOBACTER INFECTION [None]
